FAERS Safety Report 19101302 (Version 2)
Quarter: 2021Q2

REPORT INFORMATION
  Report Type: Spontaneous
  Country: DE (occurrence: DE)
  Receive Date: 20210407
  Receipt Date: 20210430
  Transmission Date: 20210717
  Serious: Yes (Hospitalization)
  Sender: FDA-Public Use
  Company Number: DE-TEVA-2021-DE-1897608

PATIENT
  Age: 39 Year
  Sex: Male

DRUGS (9)
  1. DAPTOMYCIN?RATIOPHARM  500 MG PULVER ZUR HERSTELLUNG EINER INJEKTIONS? [Suspect]
     Active Substance: DAPTOMYCIN
     Indication: HAIRY CELL LEUKAEMIA
     Dosage: APPLICATION VIA DISPOSABLE INFUSOMAT (INTERMATE SV 100) ON FEBRUARY 24TH, 2021 , UNIT DOSE : 1000 MG
     Route: 042
     Dates: start: 202102, end: 20210227
  2. MACROGOL [Concomitant]
     Active Substance: POLYETHYLENE GLYCOLS
  3. DAPTOMYCIN?RATIOPHARM  500 MG PULVER ZUR HERSTELLUNG EINER INJEKTIONS? [Suspect]
     Active Substance: DAPTOMYCIN
     Indication: ABSCESS
  4. HYDROMORPHON 1,3MG [Concomitant]
     Dosage: 1 TABLET MAX. 3 TIMES PER DAY
  5. PARACETAMOL 500MG [Concomitant]
     Active Substance: ACETAMINOPHEN
     Dosage: UNIT INTERVAL:AS REQUIRED:1 TABLET MAX. 3 TIMES:UNIT DOSE:3DOSAGEFORM
  6. ACICLOVIR 400MG [Concomitant]
     Dosage: 400MG 1?0?1:UNIT DOSE:800MILLIGRAM
  7. METAMIZOL 500MG [Concomitant]
     Dosage: 120 GTT DAILY; 30?30?30?30
  8. DAPTOMYCIN?RATIOPHARM  500 MG PULVER ZUR HERSTELLUNG EINER INJEKTIONS? [Suspect]
     Active Substance: DAPTOMYCIN
     Indication: STAPHYLOCOCCAL INFECTION
  9. COTRIMOXAZOL 960MG [Concomitant]
     Dosage: 960 MG 1?0?1 MONDAYS AND THURSDAYS:UNIT DOSE:1920MILLIGRAM

REACTIONS (1)
  - Rash pruritic [Recovering/Resolving]

NARRATIVE: CASE EVENT DATE: 20210225
